FAERS Safety Report 5622419-3 (Version None)
Quarter: 2008Q1

REPORT INFORMATION
  Report Type: 
  Country: None (occurrence: None)
  Receive Date: 20080211
  Receipt Date: 20080130
  Transmission Date: 20080703
  Serious: Yes (Other)
  Sender: FDA-Public Use
  Company Number: ES-PFIZER INC-2008001252

PATIENT
  Age: 76 Year
  Sex: Female

DRUGS (4)
  1. PHENYTOIN [Suspect]
     Dosage: DAILY DOSE:300MG
  2. THERAPEUTIC RADIOPHARMACEUTICALS [Interacting]
  3. DEXAMETHASONE TAB [Concomitant]
  4. OMEPRAZOLE [Concomitant]

REACTIONS (5)
  - BLOOD PRESSURE DIASTOLIC DECREASED [None]
  - DRUG INTERACTION [None]
  - HYPOALBUMINAEMIA [None]
  - SUPERINFECTION [None]
  - TOXIC EPIDERMAL NECROLYSIS [None]
